FAERS Safety Report 5511523-6 (Version None)
Quarter: 2007Q4

REPORT INFORMATION
  Report Type: 
  Country: None (occurrence: None)
  Receive Date: 20071109
  Receipt Date: 20071031
  Transmission Date: 20080405
  Serious: Yes (Other)
  Sender: FDA-Public Use
  Company Number: B0494407A

PATIENT
  Sex: Male

DRUGS (1)
  1. ADARTREL [Suspect]
     Indication: RESTLESS LEGS SYNDROME
     Dates: start: 20050101

REACTIONS (5)
  - COLITIS [None]
  - DEFAECATION URGENCY [None]
  - DIARRHOEA [None]
  - GAMMA-GLUTAMYLTRANSFERASE INCREASED [None]
  - TRANSAMINASES INCREASED [None]
